FAERS Safety Report 4428877-4 (Version None)
Quarter: 2004Q3

REPORT INFORMATION
  Report Type: 
  Country: None (occurrence: None)
  Receive Date: 20040817
  Receipt Date: 20040728
  Transmission Date: 20050211
  Serious: Yes (Hospitalization)
  Sender: FDA-Public Use
  Company Number: CIO04017631

PATIENT
  Age: 36 Month
  Sex: Male
  Weight: 15.9 kg

DRUGS (2)
  1. NYQUIL CHILDREN'S COLD/ COUGH RELIEF, CHERRY FLAVOR(PSEUDOEPHEDRINE HY [Suspect]
     Dosage: 15 ML, 1 /DAY FOR 2 DAYS, ORAL
     Route: 048
     Dates: end: 20040528
  2. TYLENOL [Concomitant]

REACTIONS (3)
  - MEDICATION ERROR [None]
  - STEVENS-JOHNSON SYNDROME [None]
  - STOMATITIS [None]
